FAERS Safety Report 8047517-9 (Version None)
Quarter: 2012Q1

REPORT INFORMATION
  Report Type: 
  Country: None (occurrence: None)
  Receive Date: 20120116
  Receipt Date: 20120113
  Transmission Date: 20120608
  Serious: Yes (Disabling)
  Sender: FDA-Public Use
  Company Number: DK-BAYER-200927399GPV

PATIENT
  Age: 37 Year
  Sex: Female
  Weight: 49 kg

DRUGS (4)
  1. MAGNEVIST [Suspect]
     Dosage: 15 ML (DAILY DOSE), ONCE,
     Dates: start: 20050509, end: 20050509
  2. GADOLINIUM IN UNSPECIFIED DRUG [Suspect]
     Indication: SCAN WITH CONTRAST
     Dosage: UNK
     Route: 042
     Dates: start: 20060428
  3. GADAVIST [Suspect]
     Indication: SCAN WITH CONTRAST
     Dosage: 5 ML (DAILY DOSE), ONCE, INTRAVENOUS
     Route: 042
     Dates: start: 20080131, end: 20080131
  4. MAGNEVIST [Suspect]
     Indication: SCAN WITH CONTRAST
     Dosage: 15 ML, ONCE
     Route: 042
     Dates: start: 20070125, end: 20070125

REACTIONS (5)
  - ARTHROPATHY [None]
  - NEPHROGENIC SYSTEMIC FIBROSIS [None]
  - BLISTER [None]
  - ECZEMA [None]
  - PHOTOSENSITIVITY REACTION [None]
